FAERS Safety Report 14350178 (Version 4)
Quarter: 2018Q2

REPORT INFORMATION
  Report Type: Spontaneous
  Country: CZ (occurrence: CZ)
  Receive Date: 20180104
  Receipt Date: 20180521
  Transmission Date: 20180711
  Serious: Yes (Disabling)
  Sender: FDA-Public Use
  Company Number: CZ-PFIZER INC-2017552273

PATIENT
  Age: 35 Year
  Sex: Female

DRUGS (5)
  1. SOLU-MEDROL [Suspect]
     Active Substance: METHYLPREDNISOLONE SODIUM SUCCINATE
     Dosage: ADMINISTERED IN PULSES
  2. PREDNISONE. [Suspect]
     Active Substance: PREDNISONE
     Dosage: 10 MG, UNK
  3. PREDNISONE. [Suspect]
     Active Substance: PREDNISONE
     Dosage: 120 MG, DAILY
  4. IMURAN [Concomitant]
     Active Substance: AZATHIOPRINE
     Dosage: UNK
  5. PLAQUENIL /00072602/ [Concomitant]
     Active Substance: HYDROXYCHLOROQUINE DIPHOSPHATE
     Dosage: UNK

REACTIONS (9)
  - Myopathy [Unknown]
  - Weight increased [Unknown]
  - Resorption bone increased [Recovering/Resolving]
  - Intervertebral disc compression [Recovering/Resolving]
  - Cushingoid [Unknown]
  - Amenorrhoea [Unknown]
  - Blood parathyroid hormone increased [Unknown]
  - Bone formation decreased [Recovering/Resolving]
  - Vitamin D decreased [Unknown]
